FAERS Safety Report 9759394 (Version 1)
Quarter: 2013Q4

REPORT INFORMATION
  Report Type: Spontaneous
  Country: US (occurrence: None)
  Receive Date: 20131216
  Receipt Date: 20131216
  Transmission Date: 20140711
  Serious: Yes (Hospitalization, Other)
  Sender: FDA-Public Use
  Company Number: 163-21880-12040859 (0)

PATIENT
  Age: 50 Year
  Sex: Male

DRUGS (1)
  1. REVLIMID (LENALIDOMIDE) (CAPSULES) [Suspect]
     Indication: PLASMA CELL MYELOMA
     Dosage: 25 MG, DAILY FOR 21 DAYS OUT OF 28, PO ?15 MG, DAILY FOR 21 DAYS ON, 7 DAYS OFF, PO ?15 MG, DAILY FO

REACTIONS (4)
  - Pneumonia [None]
  - Pancytopenia [None]
  - Clostridium difficile infection [None]
  - Acute myocardial infarction [None]
